FAERS Safety Report 4385988-X (Version None)
Quarter: 2004Q2

REPORT INFORMATION
  Report Type: 
  Country: None (occurrence: None)
  Receive Date: 20040607
  Receipt Date: 20031110
  Transmission Date: 20050107
  Serious: Yes (Other)
  Sender: FDA-Public Use
  Company Number: 351448

PATIENT
  Sex: 0

DRUGS (3)
  1. ACCUTANE [Suspect]
     Dosage: ORAL
     Route: 048
     Dates: start: 20020917, end: 20021215
  2. GENERIC COMPONENTS UNKNOWN (GENERIC COMPONENT(S) UNKNOWN) [Suspect]
     Dates: start: 20030115, end: 20030315
  3. ORAL CONTRACEPTIVE PILL (ORAL CONTRACEPTIVE NOS) [Concomitant]

REACTIONS (2)
  - NO ADVERSE EFFECT [None]
  - PREGNANCY [None]
